FAERS Safety Report 16709660 (Version 3)
Quarter: 2019Q3

REPORT INFORMATION
  Report Type: Spontaneous
  Country: DE (occurrence: DE)
  Receive Date: 20190816
  Receipt Date: 20190927
  Transmission Date: 20191004
  Serious: Yes (Other)
  Sender: FDA-Public Use
  Company Number: DE-JNJFOC-20190815296

PATIENT
  Age: 67 Year
  Sex: Female
  Weight: 78 kg

DRUGS (7)
  1. REVLIMID [Concomitant]
     Active Substance: LENALIDOMIDE
     Indication: PRODUCT USED FOR UNKNOWN INDICATION
     Route: 048
     Dates: start: 20190507
  2. DARZALEX [Suspect]
     Active Substance: DARATUMUMAB
     Indication: PLASMA CELL MYELOMA
     Route: 042
     Dates: start: 201809, end: 201902
  3. G-CSF [Concomitant]
     Active Substance: GRANULOCYTE COLONY-STIMULATING FACTOR NOS
     Indication: HAEMATOPOIETIC STEM CELL MOBILISATION
     Dosage: 48 IE 2 X TGL. AB DEM 5. TAG, 12 HOURS
  4. DEXAMETHASONE. [Concomitant]
     Active Substance: DEXAMETHASONE
     Indication: PRODUCT USED FOR UNKNOWN INDICATION
     Route: 048
     Dates: start: 20190507
  5. DARZALEX [Suspect]
     Active Substance: DARATUMUMAB
     Route: 042
     Dates: start: 20190311
  6. CYCLOPHOSPHAMID [Suspect]
     Active Substance: CYCLOPHOSPHAMIDE
     Indication: HAEMATOPOIETIC STEM CELL MOBILISATION
     Dosage: 2000 MILLIGRAMS EVERY DAY
     Route: 065
     Dates: start: 20190704, end: 20190705
  7. DARZALEX [Suspect]
     Active Substance: DARATUMUMAB
     Dosage: DAILY DOSE: 2520 MG MILLGRAM EVERY TOTAL 2 SEPARATED DOSES
     Route: 042
     Dates: start: 20190507

REACTIONS (9)
  - Transaminases increased [Unknown]
  - Appetite disorder [Unknown]
  - Fatigue [Unknown]
  - Constipation [Unknown]
  - Taste disorder [Unknown]
  - Diarrhoea [Recovered/Resolved]
  - Hepatitis E [Recovered/Resolved]
  - Nausea [Unknown]
  - Parosmia [Unknown]

NARRATIVE: CASE EVENT DATE: 201907
